FAERS Safety Report 7743422-3 (Version None)
Quarter: 2011Q3

REPORT INFORMATION
  Report Type: 
  Country: None (occurrence: None)
  Receive Date: 20110912
  Receipt Date: 20110902
  Transmission Date: 20111222
  Serious: Yes (Other)
  Sender: FDA-Public Use
  Company Number: PHHY2011CA61822

PATIENT
  Sex: Female

DRUGS (1)
  1. ZOLEDRONOC ACID [Suspect]
     Indication: OSTEOPOROSIS
     Dosage: UNK UKN, UNK
     Route: 042
     Dates: start: 20110704

REACTIONS (7)
  - FEELING ABNORMAL [None]
  - HEADACHE [None]
  - PAIN [None]
  - ASTHMA [None]
  - HAEMORRHAGE [None]
  - BONE PAIN [None]
  - BACK PAIN [None]
